FAERS Safety Report 17096174 (Version 1)
Quarter: 2019Q4

REPORT INFORMATION
  Report Type: Spontaneous
  Country: CA (occurrence: CA)
  Receive Date: 20191202
  Receipt Date: 20191202
  Transmission Date: 20200122
  Serious: Yes (Other)
  Sender: FDA-Public Use
  Company Number: CA-SAMSUNG BIOEPIS-SB-2019-35079

PATIENT
  Age: 40 Year
  Sex: Male

DRUGS (3)
  1. AZATHIOPRINE. [Concomitant]
     Active Substance: AZATHIOPRINE
     Indication: CROHN^S DISEASE
     Route: 048
  2. INFLIXIMAB [Suspect]
     Active Substance: INFLIXIMAB
     Indication: COLITIS ULCERATIVE
     Route: 042
  3. INFLIXIMAB [Suspect]
     Active Substance: INFLIXIMAB
     Indication: CROHN^S DISEASE
     Route: 042

REACTIONS (7)
  - Off label use [Recovered/Resolved]
  - Weight increased [Recovered/Resolved]
  - Therapeutic response shortened [Recovered/Resolved]
  - Abdominal pain upper [Recovered/Resolved]
  - Psoriasis [Recovered/Resolved]
  - Haematochezia [Recovered/Resolved]
  - Heart rate abnormal [Recovered/Resolved]
